FAERS Safety Report 19250399 (Version 16)
Quarter: 2024Q4

REPORT INFORMATION
  Report Type: Report from Study
  Country: US (occurrence: US)
  Receive Date: 20210512
  Receipt Date: 20241222
  Transmission Date: 20250114
  Serious: Yes (Hospitalization, Other)
  Sender: TAKEDA
  Company Number: US-SHIRE-US201900876

PATIENT
  Age: 69 Year
  Sex: Female

DRUGS (4)
  1. HUMAN IMMUNOGLOBULIN G [Suspect]
     Active Substance: HUMAN IMMUNOGLOBULIN G
     Indication: Primary immunodeficiency syndrome
     Dosage: 10 GRAM, 1/WEEK
  2. HUMAN IMMUNOGLOBULIN G [Suspect]
     Active Substance: HUMAN IMMUNOGLOBULIN G
     Indication: Hypogammaglobulinaemia
     Dosage: UNK
  3. CUVITRU [Suspect]
     Active Substance: HUMAN IMMUNOGLOBULIN G
     Indication: Primary immunodeficiency syndrome
     Dosage: UNK
  4. HYQVIA [Suspect]
     Active Substance: HUMAN IMMUNOGLOBULIN G\HYALURONIDASE (HUMAN RECOMBINANT)
     Indication: Primary immunodeficiency syndrome
     Dosage: UNK

REACTIONS (29)
  - Cardiac amyloidosis [Unknown]
  - Pneumonia [Unknown]
  - Loss of consciousness [Unknown]
  - COVID-19 [Recovering/Resolving]
  - Amyloidosis [Not Recovered/Not Resolved]
  - Conjunctival haemorrhage [Unknown]
  - Atrial fibrillation [Unknown]
  - Hip fracture [Unknown]
  - Metabolic dysfunction-associated liver disease [Unknown]
  - Anaemia [Unknown]
  - Depression [Unknown]
  - Electrocardiogram abnormal [Unknown]
  - Joint injury [Unknown]
  - Organ failure [Unknown]
  - Cognitive disorder [Unknown]
  - Aphasia [Unknown]
  - Infusion site haemorrhage [Unknown]
  - Abdominal distension [Unknown]
  - Infusion site swelling [Unknown]
  - Arthralgia [Unknown]
  - Fatigue [Unknown]
  - Fall [Unknown]
  - Sleep apnoea syndrome [Unknown]
  - Cardiac disorder [Unknown]
  - Urinary tract infection [Unknown]
  - Skin disorder [Unknown]
  - Abdominal discomfort [Unknown]
  - Tachycardia [Unknown]
  - Headache [Unknown]

NARRATIVE: CASE EVENT DATE: 20190110
